FAERS Safety Report 9611836 (Version 2)
Quarter: 2014Q1

REPORT INFORMATION
  Report Type: Spontaneous
  Country: SA (occurrence: SA)
  Receive Date: 20131010
  Receipt Date: 20140227
  Transmission Date: 20141002
  Serious: Yes (Hospitalization)
  Sender: FDA-Public Use
  Company Number: PHHY2013SA112992

PATIENT
  Age: 41 Year
  Sex: Female
  Weight: 50 kg

DRUGS (2)
  1. TASIGNA [Suspect]
     Indication: CHRONIC MYELOID LEUKAEMIA
     Dosage: 300 MG, BID
     Route: 048
     Dates: start: 20130415, end: 20130730
  2. HYDROXYUREA [Concomitant]
     Indication: WHITE BLOOD CELL COUNT INCREASED
     Dosage: 1 G, TID
     Route: 048
     Dates: start: 20130214, end: 20130401

REACTIONS (2)
  - Aplastic anaemia [Unknown]
  - Bone marrow failure [Unknown]
